FAERS Safety Report 13390714 (Version 1)
Quarter: 2017Q1

REPORT INFORMATION
  Report Type: Spontaneous
  Country: US (occurrence: US)
  Receive Date: 20170331
  Receipt Date: 20170331
  Transmission Date: 20170429
  Serious: No
  Sender: FDA-Public Use
  Company Number: US-ASTRAZENECA-2017SE33303

PATIENT
  Age: 31 Year
  Sex: Male
  Weight: 108 kg

DRUGS (3)
  1. ASPIRIN. [Concomitant]
     Active Substance: ASPIRIN
     Indication: HEADACHE
     Dosage: 81 MG, FEW TIMES A YEAR
     Route: 048
  2. NEXIUM 24HR [Suspect]
     Active Substance: ESOMEPRAZOLE MAGNESIUM
     Indication: DYSPEPSIA
     Dosage: ONCE A DAY
     Route: 048
     Dates: end: 2015
  3. LATANOPROST. [Concomitant]
     Active Substance: LATANOPROST
     Indication: GLAUCOMA
     Dosage: 2 DF(ONE DROP IN BOTH EYES), 1X/DAY(AT BEDTIME)
     Route: 031

REACTIONS (2)
  - Product use issue [Unknown]
  - Cyclic vomiting syndrome [Not Recovered/Not Resolved]

NARRATIVE: CASE EVENT DATE: 2015
